FAERS Safety Report 12634008 (Version 1)
Quarter: 2016Q3

REPORT INFORMATION
  Report Type: Spontaneous
  Country: BR (occurrence: BR)
  Receive Date: 20160808
  Receipt Date: 20160808
  Transmission Date: 20161109
  Serious: Yes (Other)
  Sender: FDA-Public Use
  Company Number: BR-MYLANLABS-2016M1032359

PATIENT

DRUGS (2)
  1. LEVOTHYROXINE. [Suspect]
     Active Substance: LEVOTHYROXINE
     Route: 065
  2. LENVATINIB [Suspect]
     Active Substance: LENVATINIB
     Route: 065

REACTIONS (2)
  - Hyperthyroidism [Recovered/Resolved]
  - Hypothyroidism [Unknown]
